FAERS Safety Report 8304481-2 (Version None)
Quarter: 2012Q2

REPORT INFORMATION
  Report Type: 
  Country: None (occurrence: None)
  Receive Date: 20120423
  Receipt Date: 20120416
  Transmission Date: 20120825
  Serious: Yes (Other)
  Sender: FDA-Public Use
  Company Number: US-ELI_LILLY_AND_COMPANY-US201203004232

PATIENT
  Age: 35 Year
  Sex: Male
  Weight: 92.971 kg

DRUGS (2)
  1. CIALIS [Suspect]
     Indication: BENIGN PROSTATIC HYPERPLASIA
     Dosage: 5 MG, QD
     Dates: start: 20120201
  2. VIAGRA [Concomitant]

REACTIONS (3)
  - ERECTION INCREASED [None]
  - DRUG INTERACTION [None]
  - HAEMATURIA [None]
